FAERS Safety Report 9366538 (Version 1)
Quarter: 2013Q2

REPORT INFORMATION
  Report Type: Spontaneous
  Country: US (occurrence: US)
  Receive Date: 20130625
  Receipt Date: 20130625
  Transmission Date: 20140414
  Serious: No
  Sender: FDA-Public Use
  Company Number: US-MYLANLABS-2013S1007541

PATIENT
  Age: 66 Year
  Sex: Male
  Weight: 140.62 kg

DRUGS (4)
  1. ATORVASTATIN CALCIUM TABLETS [Suspect]
     Indication: BLOOD CHOLESTEROL INCREASED
     Route: 048
     Dates: start: 20130401
  2. HCTZ [Concomitant]
     Indication: BLOOD PRESSURE INCREASED
     Route: 048
  3. MAG OXIDE [Concomitant]
     Route: 048
  4. POTASSIUM [Concomitant]
     Route: 048

REACTIONS (2)
  - Nasal congestion [Not Recovered/Not Resolved]
  - Dyspepsia [Not Recovered/Not Resolved]
